FAERS Safety Report 4726518-X (Version None)
Quarter: 2005Q3

REPORT INFORMATION
  Report Type: 
  Country: None (occurrence: None)
  Receive Date: 20050726
  Receipt Date: 20050713
  Transmission Date: 20060218
  Serious: Yes (Other)
  Sender: FDA-Public Use
  Company Number: 2005098040

PATIENT
  Age: 53 Year
  Sex: Female

DRUGS (6)
  1. RELPAX [Suspect]
     Indication: MIGRAINE
     Dosage: (40 MG, AS NEEDED), ORAL
     Route: 048
  2. PROGYNOVA (ESTRADIOL VALERATE) [Suspect]
     Indication: MENOPAUSAL SYMPTOMS
     Dosage: ORAL
     Route: 048
  3. VIOXX [Suspect]
     Indication: MUSCULOSKELETAL PAIN
     Dosage: ORAL
     Route: 048
  4. ATACAND [Concomitant]
  5. SELO-ZOK (METOPROLOL SUCCINATE) [Concomitant]
  6. NEXIUM [Concomitant]

REACTIONS (11)
  - ABDOMINAL DISCOMFORT [None]
  - ASTHENIA [None]
  - BALANCE DISORDER [None]
  - BRAIN STEM ISCHAEMIA [None]
  - CEREBRAL ISCHAEMIA [None]
  - CEREBROVASCULAR ACCIDENT [None]
  - FATIGUE [None]
  - HYPERTENSION [None]
  - MALAISE [None]
  - PARAESTHESIA [None]
  - PARAESTHESIA ORAL [None]
